FAERS Safety Report 8877294 (Version 7)
Quarter: 2014Q1

REPORT INFORMATION
  Report Type: Spontaneous
  Country: CA (occurrence: CA)
  Receive Date: 20121023
  Receipt Date: 20140326
  Transmission Date: 20141002
  Serious: Yes (Other)
  Sender: FDA-Public Use
  Company Number: CA-ROCHE-1147671

PATIENT
  Age: 38 Year
  Sex: Female

DRUGS (13)
  1. XOLAIR [Suspect]
     Indication: ASTHMA
     Route: 058
     Dates: start: 20111130
  2. XOLAIR [Suspect]
     Route: 058
     Dates: start: 20111215
  3. XOLAIR [Suspect]
     Route: 058
     Dates: start: 20120113
  4. XOLAIR [Suspect]
     Route: 058
     Dates: start: 20120504
  5. XOLAIR [Suspect]
     Route: 058
     Dates: start: 20120918
  6. XOLAIR [Suspect]
     Route: 058
     Dates: start: 20131031
  7. XOLAIR [Suspect]
     Route: 058
     Dates: start: 20131125
  8. SYMBICORT [Concomitant]
  9. VENTOLIN [Concomitant]
  10. ATARAX (CANADA) [Concomitant]
  11. REACTINE (CANADA) [Concomitant]
  12. CICLESONIDE [Concomitant]
  13. OMNARIS [Concomitant]

REACTIONS (10)
  - Blood pressure decreased [Not Recovered/Not Resolved]
  - Chest discomfort [Unknown]
  - Oropharyngeal pain [Unknown]
  - Conjunctivitis [Unknown]
  - Wheezing [Unknown]
  - Fatigue [Unknown]
  - Nasal congestion [Unknown]
  - Cough [Recovering/Resolving]
  - Sinusitis [Unknown]
  - Lower respiratory tract infection [Recovering/Resolving]
